FAERS Safety Report 9107569 (Version 1)
Quarter: 2013Q1

REPORT INFORMATION
  Report Type: Spontaneous
  Country: JP (occurrence: JP)
  Receive Date: 20130221
  Receipt Date: 20130221
  Transmission Date: 20140127
  Serious: Yes (Death, Other)
  Sender: FDA-Public Use
  Company Number: PHHY2013JP015704

PATIENT
  Age: 2 Year
  Sex: Female

DRUGS (11)
  1. VALPROIC ACID [Suspect]
     Indication: CONVULSION
  2. PHENOBARBITAL [Suspect]
     Indication: CONVULSION
  3. GABAPENTIN [Suspect]
  4. MIDAZOLAM [Suspect]
  5. THIOPENTAL [Suspect]
  6. KETAMINE [Suspect]
  7. MAGNESIUM SULFATE [Suspect]
  8. PENTOBARBITAL [Suspect]
  9. BENZODIAZEPINES [Suspect]
  10. ANAESTHETICS, GENERAL [Suspect]
  11. VITAMIN B6 [Concomitant]

REACTIONS (6)
  - Respiratory failure [Fatal]
  - Status epilepticus [Unknown]
  - Drug ineffective [Unknown]
  - Pulmonary congestion [None]
  - Pulmonary haemorrhage [None]
  - Blood pyruvic acid increased [None]
